FAERS Safety Report 10667257 (Version 1)
Quarter: 2014Q4

REPORT INFORMATION
  Report Type: Spontaneous
  Country: US (occurrence: None)
  Receive Date: 20141219
  Receipt Date: 20141219
  Transmission Date: 20150529
  Serious: Yes (Other)
  Sender: FDA-Public Use
  Company Number: None

PATIENT
  Age: 59 Year
  Sex: Female

DRUGS (13)
  1. MVI [Concomitant]
     Active Substance: VITAMINS
  2. AMPYRA [Suspect]
     Active Substance: DALFAMPRIDINE
     Indication: MULTIPLE SCLEROSIS
     Route: 048
     Dates: start: 201106
  3. FLEXERIL [Concomitant]
     Active Substance: CYCLOBENZAPRINE HYDROCHLORIDE
  4. VITAMIN B COMPLEX WITH C [Concomitant]
     Active Substance: ASCORBIC ACID\CALCIUM PANTOTHENATE\CYANOCOBALAMIN\NIACINAMIDE\PYRIDOXINE HYDROCHLORIDE\RIBOFLAVIN\THIAMINE MONONITRATE
  5. ASPIRIN. [Concomitant]
     Active Substance: ASPIRIN
  6. COENZYME Q10 [Concomitant]
     Active Substance: UBIDECARENONE
  7. ETALOPRAM [Concomitant]
  8. COPAXONE [Concomitant]
     Active Substance: GLATIRAMER ACETATE
  9. FLAVOXATE [Concomitant]
     Active Substance: FLAVOXATE
  10. BACLOFEN. [Concomitant]
     Active Substance: BACLOFEN
  11. CALCIUM + D [Concomitant]
     Active Substance: CALCIUM\VITAMIN D
  12. DIAZEPAM. [Concomitant]
     Active Substance: DIAZEPAM
  13. MIRALAX [Concomitant]
     Active Substance: POLYETHYLENE GLYCOL 3350

REACTIONS (8)
  - Pyrexia [None]
  - Bacterial vaginosis [None]
  - Abdominal pain lower [None]
  - Urinary tract infection [None]
  - Vaginal discharge [None]
  - Dysuria [None]
  - Pain [None]
  - Pseudomonas test positive [None]

NARRATIVE: CASE EVENT DATE: 20141030
